FAERS Safety Report 11185397 (Version 3)
Quarter: 2015Q3

REPORT INFORMATION
  Report Type: Report from Study
  Country: JP (occurrence: JP)
  Receive Date: 20150612
  Receipt Date: 20150728
  Transmission Date: 20151125
  Serious: Yes (Other)
  Sender: FDA-Public Use
  Company Number: US-ASTRAZENECA-2015SE56439

PATIENT
  Age: 174 Day
  Sex: Male
  Weight: 7.6 kg

DRUGS (64)
  1. SYNAGIS [Suspect]
     Active Substance: PALIVIZUMAB
     Indication: LANGERHANS^ CELL HISTIOCYTOSIS
     Dosage: 1.15ML
     Route: 030
     Dates: start: 20150304, end: 20150304
  2. SYNAGIS [Suspect]
     Active Substance: PALIVIZUMAB
     Indication: CHEMOTHERAPY
     Route: 030
  3. FERRIC PYROPHOSPHATE [Concomitant]
     Active Substance: FERRIC PYROPHOSPHATE
     Indication: PRODUCT USED FOR UNKNOWN INDICATION
     Route: 048
     Dates: start: 20150120, end: 20150410
  4. CLOSTRIDIUM BUTYRICUM [Concomitant]
     Active Substance: CLOSTRIDIUM BUTYRICUM SPORES STRAIN M-55
     Indication: PRODUCT USED FOR UNKNOWN INDICATION
     Route: 048
     Dates: start: 20150128, end: 20150410
  5. PREDNISOLONE SODIUM SUCCINATE [Concomitant]
     Active Substance: PREDNISOLONE SODIUM SUCCINATE
     Indication: PRODUCT USED FOR UNKNOWN INDICATION
     Dates: start: 20150307, end: 20150307
  6. NARTOGRASTIM RECOMBINANT [Concomitant]
     Indication: PRODUCT USED FOR UNKNOWN INDICATION
     Route: 050
     Dates: start: 20150218, end: 20150221
  7. FAMOTIDINE. [Concomitant]
     Active Substance: FAMOTIDINE
     Indication: PROPHYLAXIS
     Dates: start: 20150331, end: 20150402
  8. CEFTRIAXONE SODIUM. [Concomitant]
     Active Substance: CEFTRIAXONE SODIUM
     Indication: PRODUCT USED FOR UNKNOWN INDICATION
     Dates: start: 20150116, end: 20150119
  9. FUROSEMIDE. [Concomitant]
     Active Substance: FUROSEMIDE
     Indication: PRODUCT USED FOR UNKNOWN INDICATION
     Dates: start: 20150131, end: 20150202
  10. CYLOCIDE [Suspect]
     Active Substance: CYTARABINE
     Indication: LANGERHANS^ CELL HISTIOCYTOSIS
     Route: 050
     Dates: start: 20150128, end: 20150201
  11. IMMUNOGLOBULINUM HUMANUM [Concomitant]
     Indication: PRODUCT USED FOR UNKNOWN INDICATION
     Dates: start: 20150226, end: 20150228
  12. MEROPENEM. [Concomitant]
     Active Substance: MEROPENEM
     Indication: PRODUCT USED FOR UNKNOWN INDICATION
     Route: 050
     Dates: start: 20150226, end: 20150311
  13. PREDNISOLONE SODIUM SUCCINATE [Concomitant]
     Active Substance: PREDNISOLONE SODIUM SUCCINATE
     Indication: PRODUCT USED FOR UNKNOWN INDICATION
     Route: 050
     Dates: start: 20150120, end: 20150126
  14. SYNAGIS [Suspect]
     Active Substance: PALIVIZUMAB
     Indication: LANGERHANS^ CELL HISTIOCYTOSIS
     Dosage: 1.1ML
     Route: 030
     Dates: start: 20150204
  15. SYNAGIS [Suspect]
     Active Substance: PALIVIZUMAB
     Indication: BONE MARROW FAILURE
     Dosage: 1.15ML
     Route: 030
     Dates: start: 20150304, end: 20150304
  16. ONCOVIN [Suspect]
     Active Substance: VINCRISTINE SULFATE
     Indication: LANGERHANS^ CELL HISTIOCYTOSIS
     Route: 050
     Dates: start: 20150211, end: 20150211
  17. ONCOVIN [Suspect]
     Active Substance: VINCRISTINE SULFATE
     Indication: LANGERHANS^ CELL HISTIOCYTOSIS
     Route: 050
     Dates: start: 20150331, end: 20150331
  18. GRANISETRON HYDROCHLORIDE. [Concomitant]
     Active Substance: GRANISETRON HYDROCHLORIDE
     Indication: PRODUCT USED FOR UNKNOWN INDICATION
     Dates: start: 20150211, end: 20150215
  19. GRANISETRON HYDROCHLORIDE. [Concomitant]
     Active Substance: GRANISETRON HYDROCHLORIDE
     Indication: PRODUCT USED FOR UNKNOWN INDICATION
     Dates: start: 20150225, end: 20150226
  20. GRANISETRON HYDROCHLORIDE. [Concomitant]
     Active Substance: GRANISETRON HYDROCHLORIDE
     Indication: PRODUCT USED FOR UNKNOWN INDICATION
     Dates: start: 20150317, end: 20150317
  21. PREDNISOLONE ACETATE. [Concomitant]
     Active Substance: PREDNISOLONE ACETATE
     Indication: LANGERHANS^ CELL HISTIOCYTOSIS
     Dates: start: 20150304, end: 20150307
  22. PREDNISOLONE ACETATE. [Concomitant]
     Active Substance: PREDNISOLONE ACETATE
     Indication: LANGERHANS^ CELL HISTIOCYTOSIS
     Dates: start: 20150308, end: 20150308
  23. PREDNISOLONE ACETATE. [Concomitant]
     Active Substance: PREDNISOLONE ACETATE
     Indication: LANGERHANS^ CELL HISTIOCYTOSIS
     Dates: start: 20150309, end: 20150310
  24. ATOVAQUONE. [Concomitant]
     Active Substance: ATOVAQUONE
     Indication: PROPHYLAXIS
     Route: 048
     Dates: start: 20150210, end: 20150211
  25. MAGNESIUM OXIDE. [Concomitant]
     Active Substance: MAGNESIUM OXIDE
     Indication: PRODUCT USED FOR UNKNOWN INDICATION
     Route: 048
     Dates: start: 20150222, end: 20150302
  26. MAGNESIUM OXIDE. [Concomitant]
     Active Substance: MAGNESIUM OXIDE
     Indication: PRODUCT USED FOR UNKNOWN INDICATION
     Dates: start: 20150303, end: 20150525
  27. SYNAGIS [Suspect]
     Active Substance: PALIVIZUMAB
     Indication: CHEMOTHERAPY
     Dosage: 1.1ML
     Route: 030
     Dates: start: 20150204
  28. SYNAGIS [Suspect]
     Active Substance: PALIVIZUMAB
     Indication: CHEMOTHERAPY
     Dosage: 1.15ML
     Route: 030
     Dates: start: 20150304, end: 20150304
  29. ALFACALCIDOL [Concomitant]
     Active Substance: ALFACALCIDOL
     Indication: PROPHYLAXIS
     Route: 048
     Dates: start: 20150120, end: 20150123
  30. SULFAMETHOXAZOLE AND TRIMETHOPRIM [Concomitant]
     Active Substance: SULFAMETHOXAZOLE\TRIMETHOPRIM
     Indication: PROPHYLAXIS
     Dates: start: 20150126, end: 20150127
  31. SYNAGIS [Suspect]
     Active Substance: PALIVIZUMAB
     Indication: LANGERHANS^ CELL HISTIOCYTOSIS
     Route: 030
  32. CYLOCIDE [Suspect]
     Active Substance: CYTARABINE
     Indication: LANGERHANS^ CELL HISTIOCYTOSIS
     Route: 050
     Dates: start: 20150317, end: 20150317
  33. PENTAMIDINE ISETIONATE [Concomitant]
     Active Substance: PENTAMIDINE ISETHIONATE
     Indication: PRODUCT USED FOR UNKNOWN INDICATION
     Route: 050
     Dates: start: 20150128, end: 20150206
  34. CEFOZOPRAN HYDROCHLORIDE [Concomitant]
     Active Substance: CEFOZOPRAN HYDROCHLORIDE
     Indication: PRODUCT USED FOR UNKNOWN INDICATION
     Dates: start: 20150213, end: 20150218
  35. GRANISETRON HYDROCHLORIDE. [Concomitant]
     Active Substance: GRANISETRON HYDROCHLORIDE
     Indication: PRODUCT USED FOR UNKNOWN INDICATION
     Route: 050
     Dates: start: 20150128, end: 20150201
  36. NARTOGRASTIM RECOMBINANT [Concomitant]
     Indication: PRODUCT USED FOR UNKNOWN INDICATION
     Dates: start: 20150311, end: 20150314
  37. ALFACALCIDOL [Concomitant]
     Active Substance: ALFACALCIDOL
     Indication: PROPHYLAXIS
     Dates: start: 20150124, end: 20150403
  38. FAMOTIDINE. [Concomitant]
     Active Substance: FAMOTIDINE
     Indication: PROPHYLAXIS
     Route: 048
     Dates: start: 20150120, end: 20150313
  39. ONCOVIN [Suspect]
     Active Substance: VINCRISTINE SULFATE
     Indication: LANGERHANS^ CELL HISTIOCYTOSIS
     Route: 050
     Dates: start: 20150128, end: 20150128
  40. ONCOVIN [Suspect]
     Active Substance: VINCRISTINE SULFATE
     Indication: LANGERHANS^ CELL HISTIOCYTOSIS
     Route: 050
     Dates: start: 20150225
  41. CILNIDIPINE [Concomitant]
     Active Substance: CILNIDIPINE
     Indication: PRODUCT USED FOR UNKNOWN INDICATION
     Route: 048
     Dates: start: 20150221, end: 20150406
  42. CEFOZOPRAN HYDROCHLORIDE [Concomitant]
     Active Substance: CEFOZOPRAN HYDROCHLORIDE
     Indication: PRODUCT USED FOR UNKNOWN INDICATION
     Route: 050
     Dates: start: 20150126, end: 20150204
  43. GRANISETRON HYDROCHLORIDE. [Concomitant]
     Active Substance: GRANISETRON HYDROCHLORIDE
     Indication: PRODUCT USED FOR UNKNOWN INDICATION
     Dates: start: 20150306, end: 20150308
  44. NARTOGRASTIM RECOMBINANT [Concomitant]
     Indication: PRODUCT USED FOR UNKNOWN INDICATION
     Dates: start: 20150227, end: 20150228
  45. PREDNISOLONE ACETATE. [Concomitant]
     Active Substance: PREDNISOLONE ACETATE
     Indication: LANGERHANS^ CELL HISTIOCYTOSIS
     Route: 048
     Dates: start: 20150127, end: 20150127
  46. PREDNISOLONE ACETATE. [Concomitant]
     Active Substance: PREDNISOLONE ACETATE
     Indication: LANGERHANS^ CELL HISTIOCYTOSIS
     Dates: start: 20150128, end: 20150224
  47. PREDNISOLONE ACETATE. [Concomitant]
     Active Substance: PREDNISOLONE ACETATE
     Indication: LANGERHANS^ CELL HISTIOCYTOSIS
     Dates: start: 20150317, end: 20150320
  48. FAMOTIDINE. [Concomitant]
     Active Substance: FAMOTIDINE
     Indication: PROPHYLAXIS
     Dates: start: 20150317, end: 20150320
  49. SULFAMETHOXAZOLE AND TRIMETHOPRIM [Concomitant]
     Active Substance: SULFAMETHOXAZOLE\TRIMETHOPRIM
     Indication: PROPHYLAXIS
     Dates: start: 20150116, end: 20150126
  50. SYNAGIS [Suspect]
     Active Substance: PALIVIZUMAB
     Indication: BONE MARROW FAILURE
     Route: 030
  51. CYLOCIDE [Suspect]
     Active Substance: CYTARABINE
     Indication: LANGERHANS^ CELL HISTIOCYTOSIS
     Route: 050
     Dates: start: 20150306, end: 20150308
  52. CEFOZOPRAN HYDROCHLORIDE [Concomitant]
     Active Substance: CEFOZOPRAN HYDROCHLORIDE
     Indication: PRODUCT USED FOR UNKNOWN INDICATION
     Dates: start: 20150226, end: 20150226
  53. GRANISETRON HYDROCHLORIDE. [Concomitant]
     Active Substance: GRANISETRON HYDROCHLORIDE
     Indication: PRODUCT USED FOR UNKNOWN INDICATION
     Dates: start: 20150331, end: 20150331
  54. PREDNISOLONE ACETATE. [Concomitant]
     Active Substance: PREDNISOLONE ACETATE
     Indication: LANGERHANS^ CELL HISTIOCYTOSIS
     Dates: start: 20150331, end: 20150402
  55. ATOVAQUONE. [Concomitant]
     Active Substance: ATOVAQUONE
     Indication: PROPHYLAXIS
     Dates: start: 20150212
  56. SYNAGIS [Suspect]
     Active Substance: PALIVIZUMAB
     Indication: BONE MARROW FAILURE
     Dosage: 1.1ML
     Route: 030
     Dates: start: 20150204
  57. CYLOCIDE [Suspect]
     Active Substance: CYTARABINE
     Indication: LANGERHANS^ CELL HISTIOCYTOSIS
     Route: 050
     Dates: start: 20150211, end: 20150215
  58. CYLOCIDE [Suspect]
     Active Substance: CYTARABINE
     Indication: LANGERHANS^ CELL HISTIOCYTOSIS
     Route: 050
     Dates: start: 20150225
  59. ONCOVIN [Suspect]
     Active Substance: VINCRISTINE SULFATE
     Indication: LANGERHANS^ CELL HISTIOCYTOSIS
     Route: 050
     Dates: start: 20150317, end: 20150317
  60. FLUCONAZOLE ACTAVIS [Concomitant]
     Indication: PROPHYLAXIS
     Route: 048
     Dates: start: 20150128, end: 20150414
  61. IMMUNOGLOBULIN HUMAN [Concomitant]
     Active Substance: HUMAN IMMUNOGLOBULIN G
     Indication: PRODUCT USED FOR UNKNOWN INDICATION
     Route: 050
     Dates: start: 20150209, end: 20150209
  62. IMMUNOGLOBULIN HUMAN [Concomitant]
     Active Substance: HUMAN IMMUNOGLOBULIN G
     Indication: PRODUCT USED FOR UNKNOWN INDICATION
     Dates: start: 20150330, end: 20150330
  63. NARTOGRASTIM RECOMBINANT [Concomitant]
     Indication: PRODUCT USED FOR UNKNOWN INDICATION
     Dates: start: 20150302, end: 20150303
  64. PREDNISOLONE ACETATE. [Concomitant]
     Active Substance: PREDNISOLONE ACETATE
     Indication: LANGERHANS^ CELL HISTIOCYTOSIS
     Dates: start: 20150225, end: 20150303

REACTIONS (1)
  - Drug-induced liver injury [Recovering/Resolving]

NARRATIVE: CASE EVENT DATE: 20150302
